FAERS Safety Report 17717633 (Version 1)
Quarter: 2020Q2

REPORT INFORMATION
  Report Type: Other
  Country: IT (occurrence: IT)
  Receive Date: 20200428
  Receipt Date: 20200428
  Transmission Date: 20200714
  Serious: Yes (Other)
  Sender: FDA-Public Use
  Company Number: IT-DENTSPLY-2020SCDP000156

PATIENT
  Age: 61 Year
  Sex: Female

DRUGS (2)
  1. MICONAZOLE. [Concomitant]
     Active Substance: MICONAZOLE
     Indication: URINARY TRACT INFECTION
     Dosage: VAGINAL CAPSULE
  2. LIDOCAINE. [Suspect]
     Active Substance: LIDOCAINE
     Indication: URINARY TRACT INFECTION
     Dosage: VAGINAL CAPSULE
     Route: 061

REACTIONS (4)
  - Vulval eczema [Unknown]
  - Drug hypersensitivity [Unknown]
  - Angioedema [Unknown]
  - Lymphadenopathy [Unknown]
